FAERS Safety Report 24438078 (Version 1)
Quarter: 2024Q4

REPORT INFORMATION
  Report Type: Report from Study
  Country: DE (occurrence: DE)
  Receive Date: 20241015
  Receipt Date: 20241015
  Transmission Date: 20250115
  Serious: Yes (Other)
  Sender: ABBVIE
  Company Number: DE-ABBVIE-5959314

PATIENT
  Sex: Male

DRUGS (5)
  1. CARBIDOPA\LEVODOPA [Suspect]
     Active Substance: CARBIDOPA\LEVODOPA
     Indication: Parkinson^s disease
     Dosage: MD: 9.5 ML; CRD: 3.7 ML/H; ED: 0.60 ML
     Route: 050
  2. CARBIDOPA\LEVODOPA [Suspect]
     Active Substance: CARBIDOPA\LEVODOPA
     Dosage: MD: 0.6ML; CRD:4.0 ML/H; ED: 0,60 ML
     Route: 050
     Dates: start: 20190928
  3. BENSERAZIDE\LEVODOPA [Concomitant]
     Active Substance: BENSERAZIDE\LEVODOPA
     Indication: Product used for unknown indication
     Dosage: 100/25 MG
  4. MELATONIN [Concomitant]
     Active Substance: MELATONIN
     Indication: Product used for unknown indication
  5. CLONAZEPAM [Concomitant]
     Active Substance: CLONAZEPAM
     Indication: Product used for unknown indication

REACTIONS (16)
  - Myocardial infarction [Unknown]
  - Dysphagia [Unknown]
  - On and off phenomenon [Unknown]
  - Rapid eye movement sleep behaviour disorder [Unknown]
  - On and off phenomenon [Unknown]
  - Polyneuropathy [Unknown]
  - Dyskinesia [Unknown]
  - Drug ineffective [Unknown]
  - Hyperlipidaemia [Unknown]
  - Coronary artery disease [Unknown]
  - Vitamin B12 deficiency [Unknown]
  - Hypokinesia [Unknown]
  - Musculoskeletal stiffness [Unknown]
  - Folate deficiency [Unknown]
  - Parkinsonian gait [Unknown]
  - Freezing phenomenon [Unknown]
